FAERS Safety Report 6283509-8 (Version None)
Quarter: 2009Q3

REPORT INFORMATION
  Report Type: 
  Country: None (occurrence: None)
  Receive Date: 20090721
  Receipt Date: 20090721
  Transmission Date: 20100115
  Serious: No
  Sender: FDA-Public Use
  Company Number: None

PATIENT
  Age: 51 Year
  Sex: Female
  Weight: 63.5036 kg

DRUGS (2)
  1. ZICAM NASAL SWABS DOESN'T SAY ON THE LABEL MATRIXX INITIATIVES, PARENT [Suspect]
     Indication: NASOPHARYNGITIS
     Dosage: 1 SWAB EACH 4 HOURS 4 HOURS NASAL
     Route: 045
     Dates: start: 20090505, end: 20090508
  2. ZICAM NASAL SWABS DOESN'T SAY ON THE LABEL MATRIXX INITIATIVES, PARENT [Suspect]
     Indication: NASOPHARYNGITIS
     Dosage: 1 SWAB EACH 4 HOURS 4 HOURS NASAL
     Route: 045
     Dates: start: 20090513, end: 20090515

REACTIONS (2)
  - AGEUSIA [None]
  - ANOSMIA [None]
